FAERS Safety Report 5485144-8 (Version None)
Quarter: 2007Q4

REPORT INFORMATION
  Report Type: 
  Country: None (occurrence: None)
  Receive Date: 20071015
  Receipt Date: 20071003
  Transmission Date: 20080405
  Serious: Yes (Other)
  Sender: FDA-Public Use
  Company Number: US-ABBOTT-07P-163-0418667-00

PATIENT
  Sex: Female
  Weight: 63.56 kg

DRUGS (11)
  1. HUMIRA [Suspect]
     Indication: CROHN'S DISEASE
     Route: 058
     Dates: start: 20070716
  2. HUMIRA [Suspect]
     Route: 058
     Dates: start: 20070706, end: 20070716
  3. PENTAZA [Concomitant]
     Indication: CROHN'S DISEASE
     Route: 048
     Dates: start: 20020101
  4. AZATHIOPRINE [Concomitant]
     Indication: CROHN'S DISEASE
     Route: 048
     Dates: start: 20020101
  5. LANSOPRAZOLE [Concomitant]
     Indication: GASTROOESOPHAGEAL REFLUX DISEASE
     Route: 048
     Dates: start: 19970101
  6. FLUOXETINE HYDROCHLORIDE [Concomitant]
     Indication: DEPRESSION
     Route: 048
     Dates: start: 20070801
  7. FOLIC ACID [Concomitant]
     Indication: MEDICAL DIET
     Route: 048
     Dates: start: 20070801
  8. ASCORBIC ACID [Concomitant]
     Indication: MEDICAL DIET
     Route: 048
     Dates: start: 20070901
  9. MULTI-VITAMIN [Concomitant]
     Indication: MEDICAL DIET
     Route: 048
     Dates: start: 19720101
  10. LUNESTA [Concomitant]
     Indication: INSOMNIA
     Route: 048
     Dates: start: 20040101
  11. HYDROCODONE [Concomitant]
     Indication: PAIN
     Dosage: 7.5/750 MG TABS
     Dates: start: 20070501

REACTIONS (6)
  - ABDOMINAL DISCOMFORT [None]
  - BLOOD CALCIUM INCREASED [None]
  - BLOOD GLUCOSE INCREASED [None]
  - DRUG INEFFECTIVE [None]
  - HEPATIC ENZYME INCREASED [None]
  - LIVER PALPABLE SUBCOSTAL [None]
